FAERS Safety Report 10033599 (Version 1)
Quarter: 2014Q1

REPORT INFORMATION
  Report Type: Spontaneous
  Country: US (occurrence: US)
  Receive Date: 20140325
  Receipt Date: 20140325
  Transmission Date: 20141002
  Serious: Yes (Other)
  Sender: FDA-Public Use
  Company Number: US-AMGEN-USASP2014020208

PATIENT
  Age: 61 Year
  Sex: Female
  Weight: 55.33 kg

DRUGS (2)
  1. ENBREL [Suspect]
     Indication: RHEUMATOID ARTHRITIS
     Dosage: 25 MG, 2 TIMES/WK
     Route: 058
     Dates: start: 20040201
  2. VITAMIN B COMPLEX [Concomitant]
     Dosage: UNK

REACTIONS (4)
  - Systemic lupus erythematosus [Recovered/Resolved]
  - Body temperature increased [Recovered/Resolved]
  - Pustular psoriasis [Recovered/Resolved]
  - Sinusitis [Recovered/Resolved]
